FAERS Safety Report 11213308 (Version 1)
Quarter: 2015Q2

REPORT INFORMATION
  Report Type: Spontaneous
  Country: US (occurrence: US)
  Receive Date: 20150623
  Receipt Date: 20150623
  Transmission Date: 20150821
  Serious: Yes (Hospitalization, Other)
  Sender: FDA-Public Use
  Company Number: US-PFIZER INC-2015205713

PATIENT
  Age: 89 Year
  Sex: Male
  Weight: 90.25 kg

DRUGS (4)
  1. AZO [Concomitant]
     Active Substance: PHENAZOPYRIDINE HYDROCHLORIDE
     Dosage: 1 CAPSULE PER DAY
  2. DETROL LA [Suspect]
     Active Substance: TOLTERODINE TARTRATE
     Indication: MICTURITION URGENCY
     Dosage: 4 MG, 1X/DAY
  3. FINASTERIDE. [Concomitant]
     Active Substance: FINASTERIDE
     Indication: PROSTATIC DISORDER
     Dosage: UNK
  4. AZO [Concomitant]
     Active Substance: PHENAZOPYRIDINE HYDROCHLORIDE
     Indication: POLLAKIURIA
     Dosage: 2 CAPSULES PER DAY FOR 2 WEEKS

REACTIONS (7)
  - Memory impairment [Not Recovered/Not Resolved]
  - Functional gastrointestinal disorder [Unknown]
  - Activities of daily living impaired [Unknown]
  - Nocturia [Unknown]
  - Cerebral haemorrhage [Recovered/Resolved]
  - Blood glucose increased [Unknown]
  - Constipation [Unknown]

NARRATIVE: CASE EVENT DATE: 201311
